FAERS Safety Report 5674198-1 (Version None)
Quarter: 2008Q2

REPORT INFORMATION
  Report Type: 
  Country: None (occurrence: None)
  Receive Date: 20080227
  Receipt Date: 20070129
  Transmission Date: 20081010
  Serious: Yes (Other)
  Sender: FDA-Public Use
  Company Number: HQWYE900230JAN07

PATIENT
  Age: 18 Year
  Sex: Male
  Weight: 76.27 kg

DRUGS (2)
  1. EFFEXOR [Suspect]
     Indication: DEPRESSION
     Dosage: ORAL
     Route: 048
     Dates: start: 19980601, end: 19980901
  2. EFFEXOR [Suspect]
     Indication: SEXUAL DYSFUNCTION
     Dosage: ORAL
     Route: 048
     Dates: start: 19980601, end: 19980901

REACTIONS (7)
  - CONDITION AGGRAVATED [None]
  - DEPRESSION [None]
  - DIZZINESS [None]
  - DRY MOUTH [None]
  - MEMORY IMPAIRMENT [None]
  - SEXUAL DYSFUNCTION [None]
  - SUICIDAL IDEATION [None]
